FAERS Safety Report 16354105 (Version 3)
Quarter: 2019Q2

REPORT INFORMATION
  Report Type: Report from Study
  Country: US (occurrence: US)
  Receive Date: 20190524
  Receipt Date: 20190606
  Transmission Date: 20190711
  Serious: Yes (Hospitalization)
  Sender: FDA-Public Use
  Company Number: US-ACTELION-A-NJ2019-190800

PATIENT
  Sex: Female
  Weight: 54.42 kg

DRUGS (5)
  1. ELIQUIS [Concomitant]
     Active Substance: APIXABAN
  2. OPSUMIT [Suspect]
     Active Substance: MACITENTAN
     Indication: PULMONARY HYPERTENSION
     Dosage: 10 MG, QD
     Route: 048
  3. TYVASO [Concomitant]
     Active Substance: TREPROSTINIL
  4. FLOLAN [Concomitant]
     Active Substance: EPOPROSTENOL SODIUM
  5. ADCIRCA [Concomitant]
     Active Substance: TADALAFIL

REACTIONS (1)
  - Therapy change [Unknown]
